FAERS Safety Report 18827503 (Version 1)
Quarter: 2021Q1

REPORT INFORMATION
  Report Type: Spontaneous
  Country: US (occurrence: US)
  Receive Date: 20210201
  Receipt Date: 20210201
  Transmission Date: 20210419
  Serious: No
  Sender: FDA-Public Use
  Company Number: US-ABBVIE-20K-163-3468203-00

PATIENT
  Age: 49 Year
  Sex: Female
  Weight: 129.39 kg

DRUGS (2)
  1. HUMIRA [Suspect]
     Active Substance: ADALIMUMAB
     Indication: CONNECTIVE TISSUE DISORDER
  2. HUMIRA [Suspect]
     Active Substance: ADALIMUMAB
     Indication: PSORIATIC ARTHROPATHY
     Route: 058
     Dates: start: 20200624

REACTIONS (9)
  - Incorrect dose administered [Recovered/Resolved]
  - Red blood cell sedimentation rate increased [Unknown]
  - Injection site bruising [Not Recovered/Not Resolved]
  - Injection site injury [Not Recovered/Not Resolved]
  - Device issue [Recovered/Resolved]
  - C-reactive protein increased [Unknown]
  - Injection site discomfort [Not Recovered/Not Resolved]
  - Injection site pain [Recovered/Resolved]
  - Off label use [Not Recovered/Not Resolved]

NARRATIVE: CASE EVENT DATE: 20200624
